FAERS Safety Report 15471811 (Version 21)
Quarter: 2020Q3

REPORT INFORMATION
  Report Type: Other
  Country: PA (occurrence: PA)
  Receive Date: 20181008
  Receipt Date: 20200731
  Transmission Date: 20201102
  Serious: Yes (Hospitalization, Other)
  Sender: FDA-Public Use
  Company Number: PA-ROCHE-2005105

PATIENT
  Age: 41 Year
  Sex: Female

DRUGS (13)
  1. XOLAIR [Suspect]
     Active Substance: OMALIZUMAB
     Route: 065
     Dates: start: 201909
  2. XOLAIR [Suspect]
     Active Substance: OMALIZUMAB
     Route: 058
  3. XOLAIR [Suspect]
     Active Substance: OMALIZUMAB
     Dosage: UNK
     Route: 065
     Dates: start: 20170928
  4. XOLAIR [Suspect]
     Active Substance: OMALIZUMAB
     Route: 058
     Dates: start: 202005
  5. SALBUTAMOL [Concomitant]
     Active Substance: ALBUTEROL
     Indication: PRODUCT USED FOR UNKNOWN INDICATION
     Route: 065
  6. XOLAIR [Suspect]
     Active Substance: OMALIZUMAB
     Indication: ASTHMA
     Dosage: 150 MG, QMO
     Route: 058
     Dates: start: 201708
  7. LORATADINE. [Concomitant]
     Active Substance: LORATADINE
     Indication: PRODUCT USED FOR UNKNOWN INDICATION
     Dosage: 10 MG, QD
     Route: 048
  8. PREDNISONE. [Concomitant]
     Active Substance: PREDNISONE
     Route: 042
  9. XOLAIR [Suspect]
     Active Substance: OMALIZUMAB
     Dosage: 150 MG, QMO
     Route: 058
     Dates: start: 201911
  10. XOLAIR [Suspect]
     Active Substance: OMALIZUMAB
     Dosage: 150 MG, QMO
     Route: 058
     Dates: start: 20200219
  11. XOLAIR [Suspect]
     Active Substance: OMALIZUMAB
     Route: 058
  12. MONTELUKAST SODIUM. [Suspect]
     Active Substance: MONTELUKAST SODIUM
     Indication: ARTHRITIS
     Dosage: 25 MG, QD
     Route: 048
  13. BETAMETHASONE. [Concomitant]
     Active Substance: BETAMETHASONE
     Indication: PRODUCT USED FOR UNKNOWN INDICATION
     Route: 065

REACTIONS (52)
  - Flushing [Unknown]
  - Uterine cyst [Unknown]
  - Feeling hot [Not Recovered/Not Resolved]
  - Injection site pain [Unknown]
  - Visual impairment [Not Recovered/Not Resolved]
  - Lung opacity [Unknown]
  - Blood pressure increased [Unknown]
  - Dermatitis atopic [Unknown]
  - Product use in unapproved indication [Unknown]
  - Dysphonia [Unknown]
  - Haemorrhage [Recovering/Resolving]
  - Urticaria [Recovered/Resolved]
  - General physical health deterioration [Not Recovered/Not Resolved]
  - Reflux gastritis [Unknown]
  - Conjunctivitis allergic [Unknown]
  - Cough [Unknown]
  - Rheumatoid factor increased [Unknown]
  - Sinusitis [Unknown]
  - Wheezing [Unknown]
  - Fatigue [Not Recovered/Not Resolved]
  - Administration site inflammation [Unknown]
  - Helicobacter infection [Unknown]
  - Hypersensitivity [Unknown]
  - Headache [Not Recovered/Not Resolved]
  - Dyspnoea [Unknown]
  - Oedema [Not Recovered/Not Resolved]
  - Pyrexia [Unknown]
  - Rheumatoid arthritis [Unknown]
  - Pain in extremity [Unknown]
  - Neck pain [Not Recovered/Not Resolved]
  - Rhinitis allergic [Unknown]
  - Chest discomfort [Unknown]
  - Bone pain [Not Recovered/Not Resolved]
  - Injection site movement impairment [Unknown]
  - Arthritis [Not Recovered/Not Resolved]
  - Injection site pain [Recovered/Resolved]
  - Paranasal cyst [Unknown]
  - Pruritus [Unknown]
  - Injection site pruritus [Unknown]
  - Vision blurred [Unknown]
  - Uterine leiomyoma [Not Recovered/Not Resolved]
  - Oedema peripheral [Unknown]
  - Musculoskeletal pain [Not Recovered/Not Resolved]
  - Haematoma [Unknown]
  - Pain [Unknown]
  - Periorbital pain [Unknown]
  - Feeling abnormal [Not Recovered/Not Resolved]
  - Malaise [Not Recovered/Not Resolved]
  - Eye irritation [Unknown]
  - Bronchitis [Recovering/Resolving]
  - Asthmatic crisis [Unknown]
  - Agitation [Unknown]

NARRATIVE: CASE EVENT DATE: 201809
